FAERS Safety Report 5158512-1 (Version None)
Quarter: 2006Q4

REPORT INFORMATION
  Report Type: 
  Country: None (occurrence: None)
  Receive Date: 20061128
  Receipt Date: 20061122
  Transmission Date: 20070319
  Serious: Yes (Life-Threatening, Hospitalization)
  Sender: FDA-Public Use
  Company Number: 2006AC02189

PATIENT
  Age: 15 Year
  Sex: Male

DRUGS (3)
  1. SEROQUEL [Suspect]
     Route: 048
  2. TEGRETOL [Suspect]
     Route: 048
     Dates: end: 20060130
  3. RIVOTRIL [Suspect]
     Route: 048

REACTIONS (1)
  - OCULOGYRATION [None]
